FAERS Safety Report 15547111 (Version 3)
Quarter: 2020Q1

REPORT INFORMATION
  Report Type: Spontaneous
  Country: US (occurrence: US)
  Receive Date: 20181024
  Receipt Date: 20200302
  Transmission Date: 20200409
  Serious: No
  Sender: FDA-Public Use
  Company Number: US-009507513-1810USA010292

PATIENT
  Age: 44 Year
  Sex: Female

DRUGS (1)
  1. ZERBAXA [Suspect]
     Active Substance: CEFTOLOZANE SULFATE\TAZOBACTAM SODIUM
     Indication: OSTEOMYELITIS BACTERIAL
     Dosage: 1.5G, Q8H; INITIAL DOSE OVER 1 HOUR FOLLOWED BY 4 HOURS INFUSIONS FOR SUBSEQUENT DOSAGES

REACTIONS (1)
  - Off label use [Unknown]
